FAERS Safety Report 6396621-X (Version None)
Quarter: 2009Q4

REPORT INFORMATION
  Report Type: 
  Country: None (occurrence: None)
  Receive Date: 20091012
  Receipt Date: 20091002
  Transmission Date: 20100525
  Serious: Yes (Hospitalization)
  Sender: FDA-Public Use
  Company Number: JP-NOVOPROD-292411

PATIENT
  Age: 46 Year
  Sex: Male

DRUGS (1)
  1. NOVOLIN R [Suspect]
     Indication: DIABETES MELLITUS

REACTIONS (4)
  - ANTI-INSULIN ANTIBODY [None]
  - HYPERGLYCAEMIA [None]
  - HYPOGLYCAEMIA [None]
  - RENAL IMPAIRMENT [None]
